FAERS Safety Report 16158694 (Version 1)
Quarter: 2019Q2

REPORT INFORMATION
  Report Type: Spontaneous
  Country: US (occurrence: US)
  Receive Date: 20190403
  Receipt Date: 20190403
  Transmission Date: 20190711
  Serious: No
  Sender: FDA-Public Use
  Company Number: None

PATIENT
  Age: 21 Year
  Sex: Male
  Weight: 101.25 kg

DRUGS (4)
  1. LAMOTRIGINE 50 MG PO BID [Concomitant]
     Dates: start: 20190401
  2. RISPERIDONE 1 MG PO BID [Concomitant]
     Dates: start: 20190401
  3. METHYLPHENIDATE. [Suspect]
     Active Substance: METHYLPHENIDATE
     Indication: ATTENTION DEFICIT/HYPERACTIVITY DISORDER
     Dates: start: 20190401, end: 20190402
  4. FLUVOXAMINE 150 MG PO DAILY [Concomitant]
     Dates: start: 20190401

REACTIONS (3)
  - Drug interaction [None]
  - Aggression [None]
  - Agitation [None]

NARRATIVE: CASE EVENT DATE: 20190402
